FAERS Safety Report 21984732 (Version 2)
Quarter: 2023Q1

REPORT INFORMATION
  Report Type: Spontaneous
  Country: GR (occurrence: GR)
  Receive Date: 20230213
  Receipt Date: 20230216
  Transmission Date: 20230418
  Serious: Yes (Hospitalization, Other)
  Sender: FDA-Public Use
  Company Number: GR-MLMSERVICE-20230202-4076904-1

PATIENT
  Age: 69 Year
  Sex: Female

DRUGS (7)
  1. LEUCOVORIN CALCIUM [Suspect]
     Active Substance: LEUCOVORIN CALCIUM
     Indication: Adenocarcinoma pancreas
     Dosage: 400 MG/M2, CYCLIC
  2. OXALIPLATIN [Suspect]
     Active Substance: OXALIPLATIN
     Indication: Adenocarcinoma pancreas
     Dosage: 85 MG/M2, CYCLIC
  3. IRINOTECAN HYDROCHLORIDE [Suspect]
     Active Substance: IRINOTECAN HYDROCHLORIDE
     Indication: Adenocarcinoma pancreas
     Dosage: 180 MG/M2, CYCLIC
  4. FLUOROURACIL [Suspect]
     Active Substance: FLUOROURACIL
     Indication: Adenocarcinoma pancreas
     Dosage: 400 MG/M2 AS A BOLUS OVER 2 HOURS ON DAY 1
     Route: 040
  5. FLUOROURACIL [Suspect]
     Active Substance: FLUOROURACIL
     Dosage: THEN 2400 MG/M2 OVER 46 HOURS
     Route: 041
  6. AMLODIPINE [Concomitant]
     Active Substance: AMLODIPINE BESYLATE
     Dosage: 5 MG
     Route: 048
  7. FUROSEMIDE [Concomitant]
     Active Substance: FUROSEMIDE
     Dosage: 40 MG
     Route: 048

REACTIONS (2)
  - Toxicity to various agents [Unknown]
  - Off label use [Unknown]
